FAERS Safety Report 5832827-3 (Version None)
Quarter: 2008Q3

REPORT INFORMATION
  Report Type: 
  Country: None (occurrence: None)
  Receive Date: 20080804
  Receipt Date: 20080723
  Transmission Date: 20090109
  Serious: Yes (Other)
  Sender: FDA-Public Use
  Company Number: JP-PFIZER INC-2008062292

PATIENT
  Age: 75 Year
  Sex: Male

DRUGS (1)
  1. CHANTIX [Suspect]
     Indication: NICOTINE DEPENDENCE
     Dosage: DAILY DOSE:2MG
     Route: 048

REACTIONS (3)
  - ANOREXIA [None]
  - HEADACHE [None]
  - JAUNDICE CHOLESTATIC [None]
